FAERS Safety Report 8202857-5 (Version None)
Quarter: 2012Q1

REPORT INFORMATION
  Report Type: 
  Country: None (occurrence: None)
  Receive Date: 20120312
  Receipt Date: 20120312
  Transmission Date: 20120608
  Serious: No
  Sender: FDA-Public Use
  Company Number: None

PATIENT
  Age: 38 Year
  Sex: Male
  Weight: 79.378 kg

DRUGS (1)
  1. PROPECIA [Suspect]
     Indication: ALOPECIA
     Dosage: 1.25MG
     Route: 048
     Dates: start: 20050405, end: 20110608

REACTIONS (2)
  - ANXIETY [None]
  - ERECTILE DYSFUNCTION [None]
